FAERS Safety Report 19407007 (Version 2)
Quarter: 2021Q2

REPORT INFORMATION
  Report Type: Spontaneous
  Country: GB (occurrence: GB)
  Receive Date: 20210611
  Receipt Date: 20210624
  Transmission Date: 20210717
  Serious: Yes (Other)
  Sender: FDA-Public Use
  Company Number: GB-REGENERON PHARMACEUTICALS, INC.-2021-53934

PATIENT

DRUGS (6)
  1. EYLEA [Suspect]
     Active Substance: AFLIBERCEPT
     Dosage: 1 DF, ONCE, LEFT EYE
     Route: 031
     Dates: start: 20201015, end: 20201015
  2. EYLEA [Suspect]
     Active Substance: AFLIBERCEPT
     Dosage: 1 DF, ONCE, LEFT EYE
     Route: 031
     Dates: start: 20210311, end: 20210311
  3. EYLEA [Suspect]
     Active Substance: AFLIBERCEPT
     Dosage: 1 DF, ONCE, LEFT EYE
     Route: 031
  4. EYLEA [Suspect]
     Active Substance: AFLIBERCEPT
     Dosage: 1 DF, ONCE, LEFT EYE
     Route: 031
     Dates: start: 20210114, end: 20210114
  5. EYLEA [Suspect]
     Active Substance: AFLIBERCEPT
     Indication: PRODUCT USED FOR UNKNOWN INDICATION
     Dosage: 1 DF, ONCE, LEFT EYE
     Route: 031
     Dates: start: 20200915, end: 20200915
  6. EYLEA [Suspect]
     Active Substance: AFLIBERCEPT
     Dosage: 1 DF, ONCE, LEFT EYE
     Route: 031
     Dates: start: 20201117, end: 20201117

REACTIONS (4)
  - Narrow anterior chamber angle [Unknown]
  - Blindness [Recovered/Resolved]
  - Device use issue [Unknown]
  - Intraocular pressure increased [Recovered/Resolved]
